FAERS Safety Report 21536970 (Version 1)
Quarter: 2022Q4

REPORT INFORMATION
  Report Type: Spontaneous
  Country: US (occurrence: None)
  Receive Date: 20221101
  Receipt Date: 20221101
  Transmission Date: 20230112
  Serious: Yes (Hospitalization)
  Sender: FDA-Public Use
  Company Number: None

PATIENT
  Age: 78 Year
  Sex: Male
  Weight: 64.8 kg

DRUGS (4)
  1. ERTAPENEM [Suspect]
     Active Substance: ERTAPENEM
     Indication: Arthritis infective
     Dosage: FREQUENCY : DAILY;?
     Route: 042
     Dates: start: 20221014, end: 20221026
  2. ERTAPENEM [Suspect]
     Active Substance: ERTAPENEM
     Indication: Device related infection
  3. DAPTOMYCIN [Concomitant]
     Active Substance: DAPTOMYCIN
     Dates: start: 20221014
  4. FLUCONAZOLE [Concomitant]
     Active Substance: FLUCONAZOLE
     Dates: start: 20221014

REACTIONS (3)
  - Hallucination, visual [None]
  - Mental status changes [None]
  - Toxicity to various agents [None]

NARRATIVE: CASE EVENT DATE: 20221026
